FAERS Safety Report 9511952 (Version 1)
Quarter: 2013Q1

REPORT INFORMATION
  Report Type: Spontaneous
  Country: US (occurrence: None)
  Receive Date: 20130305
  Receipt Date: 20130305
  Transmission Date: 20140127
  Serious: Yes (Hospitalization)
  Sender: FDA-Public Use
  Company Number: 163-21880-12101933

PATIENT
  Age: 77 Year
  Sex: Female
  Weight: 71.22 kg

DRUGS (18)
  1. REVLIMID (LENALIDMIDE) (5 MILLIGRAM, CAPSULES) [Suspect]
     Indication: PLASMA CELL MYELOMA
     Dosage: 5 MG, 1 IN 1 D, PO
     Route: 048
     Dates: start: 201106
  2. ACYCLOVIR (ACICLOVIR) (UNKNOWN) [Concomitant]
  3. ARIMIDEX (ANASTROZOLE) (UNKNOWN) [Concomitant]
  4. ASA (ACETYLSALICYLIC ACID) (UNKNOWN) [Concomitant]
  5. DECADRON [Concomitant]
  6. VITAMIN B6 (PYRIDOXINE HYDROCHLORIDE) (UNKNOWN) [Concomitant]
  7. VITAMIN B12 (CYANOCOBALAMIN) (UNKNOWN) [Concomitant]
  8. SYNTHROID (LEVOTHYROXINE SODIUM) (UNKNOWN) [Concomitant]
  9. DOXYCCLINE (DOXYCYCLINE) (UNKNOWN) [Concomitant]
  10. FISH OIL (FISH OIL) (UNKNOWN) [Concomitant]
  11. FUROSEMIDE (FUROSEMIDE) (UNKNOWN) [Concomitant]
  12. FONDAPARINUX (FONDAPARINUX) (UNKNOWN) [Concomitant]
  13. MULTAQ (DRONEDARONE HYDROCHLORIDE) (UNKNOWN) [Concomitant]
  14. PRILOSEC (OMEPRAZOLE) (UNKNOWN) [Concomitant]
  15. SUCRALFATE (SUCRALFATE) (UNKNOWN) [Concomitant]
  16. SIMVASTATIN [Concomitant]
  17. VELCADE (BORTEZOMIB) (INJECTION) [Concomitant]
  18. ZOLPIDEM (ZOLPIDEM) (UNKNOWN) (ZOLPIDEM) [Concomitant]

REACTIONS (3)
  - Loss of consciousness [None]
  - Dehydration [None]
  - Pneumonia [None]
